FAERS Safety Report 6565874-7 (Version None)
Quarter: 2010Q1

REPORT INFORMATION
  Report Type: 
  Country: None (occurrence: None)
  Receive Date: 20100126
  Receipt Date: 20100121
  Transmission Date: 20100710
  Serious: Yes (Death, Life-Threatening, Hospitalization)
  Sender: FDA-Public Use
  Company Number: 2010SP003553

PATIENT
  Age: 75 Year
  Sex: Male
  Weight: 69 kg

DRUGS (9)
  1. TEMODAL [Suspect]
     Indication: GLIOBLASTOMA MULTIFORME
     Dosage: 5 MG; QD;
     Dates: start: 20091109, end: 20091215
  2. FORTECORTIN [Concomitant]
  3. PANTOPRAZOLE [Concomitant]
  4. KEPPRA [Concomitant]
  5. GLADEM [Concomitant]
  6. TEMESTA [Concomitant]
  7. ZYPREXA [Concomitant]
  8. LAEVOLAC [Concomitant]
  9. PLATELETS [Concomitant]

REACTIONS (3)
  - FEBRILE NEUTROPENIA [None]
  - THROMBOCYTOPENIA [None]
  - WHITE BLOOD CELL COUNT DECREASED [None]
